FAERS Safety Report 9246484 (Version 1)
Quarter: 2013Q2

REPORT INFORMATION
  Report Type: Spontaneous
  Country: US (occurrence: US)
  Receive Date: 20130422
  Receipt Date: 20130422
  Transmission Date: 20140414
  Serious: No
  Sender: FDA-Public Use
  Company Number: US-009507513-1304USA010719

PATIENT
  Age: 20 Year
  Sex: Female

DRUGS (2)
  1. SAPHRIS [Suspect]
     Indication: BIPOLAR DISORDER
     Dosage: 5 MG, QD
     Route: 060
  2. ZYPREXA [Concomitant]

REACTIONS (3)
  - Agitation [Unknown]
  - Inappropriate schedule of drug administration [Unknown]
  - Underdose [Unknown]
